FAERS Safety Report 4885849-3 (Version None)
Quarter: 2006Q1

REPORT INFORMATION
  Report Type: 
  Country: None (occurrence: None)
  Receive Date: 20060120
  Receipt Date: 20060110
  Transmission Date: 20060701
  Serious: Yes (Death)
  Sender: FDA-Public Use
  Company Number: NL-JNJFOC-20060101676

PATIENT
  Sex: Female

DRUGS (3)
  1. TRISPORAL [Suspect]
     Indication: ONYCHOMYCOSIS
     Dosage: PULSE THERAPY
     Route: 048
     Dates: start: 20050523
  2. ACTONEL [Concomitant]
  3. CALCICHEW D3 [Concomitant]

REACTIONS (2)
  - HEPATITIS [None]
  - POST PROCEDURAL COMPLICATION [None]
